FAERS Safety Report 12304302 (Version 4)
Quarter: 2016Q2

REPORT INFORMATION
  Report Type: Spontaneous
  Country: US (occurrence: US)
  Receive Date: 20160426
  Receipt Date: 20160616
  Transmission Date: 20160815
  Serious: Yes (Other)
  Sender: FDA-Public Use
  Company Number: US-ROCHE-1747638

PATIENT
  Age: 72 Year
  Sex: Male

DRUGS (9)
  1. AVASTIN [Suspect]
     Active Substance: BEVACIZUMAB
     Indication: NEOVASCULAR AGE-RELATED MACULAR DEGENERATION
  2. AVASTIN [Suspect]
     Active Substance: BEVACIZUMAB
     Indication: NEOVASCULARISATION
     Dosage: ONCE
     Route: 050
     Dates: start: 20160411, end: 20160411
  3. ATORVASTATIN [Concomitant]
     Active Substance: ATORVASTATIN
     Indication: DYSLIPIDAEMIA
     Route: 048
  4. NORCO [Concomitant]
     Active Substance: ACETAMINOPHEN\HYDROCODONE BITARTRATE
     Indication: PAIN
     Dosage: PRN
     Route: 048
  5. METFORMIN [Concomitant]
     Active Substance: METFORMIN HYDROCHLORIDE
     Route: 048
  6. TRICOR [Concomitant]
     Active Substance: FENOFIBRATE
     Indication: DYSLIPIDAEMIA
     Route: 048
  7. ASPIRIN. [Concomitant]
     Active Substance: ASPIRIN
     Route: 048
  8. JANUVIA [Concomitant]
     Active Substance: SITAGLIPTIN PHOSPHATE
  9. LISINOPRIL. [Concomitant]
     Active Substance: LISINOPRIL
     Route: 048

REACTIONS (5)
  - Product quality issue [Unknown]
  - Vitreous floaters [Unknown]
  - Suspected transmission of an infectious agent via product [Unknown]
  - Uveitis [Recovering/Resolving]
  - Conjunctival abrasion [Unknown]

NARRATIVE: CASE EVENT DATE: 20160412
